FAERS Safety Report 8442015-2 (Version None)
Quarter: 2012Q2

REPORT INFORMATION
  Report Type: 
  Country: None (occurrence: None)
  Receive Date: 20120615
  Receipt Date: 20111117
  Transmission Date: 20120825
  Serious: No
  Sender: FDA-Public Use
  Company Number: US-NOVEN-11US003121

PATIENT
  Sex: Male
  Weight: 89.796 kg

DRUGS (2)
  1. DAYTRANA [Suspect]
     Dosage: 30 MG, QD
     Route: 062
     Dates: start: 20110501
  2. DAYTRANA [Suspect]
     Indication: ATTENTION DEFICIT/HYPERACTIVITY DISORDER
     Dosage: 1/2 30 MG, QD
     Route: 062
     Dates: start: 20110501

REACTIONS (9)
  - RETCHING [None]
  - PARANOIA [None]
  - DECREASED APPETITE [None]
  - OFF LABEL USE [None]
  - PRODUCT QUALITY ISSUE [None]
  - WRONG TECHNIQUE IN DRUG USAGE PROCESS [None]
  - FEELING ABNORMAL [None]
  - INCORRECT DRUG ADMINISTRATION DURATION [None]
  - BLOOD GLUCOSE DECREASED [None]
